FAERS Safety Report 13744814 (Version 1)
Quarter: 2017Q3

REPORT INFORMATION
  Report Type: Spontaneous
  Country: US (occurrence: US)
  Receive Date: 20170711
  Receipt Date: 20170711
  Transmission Date: 20171127
  Serious: No
  Sender: FDA-Public Use
  Company Number: None

PATIENT
  Age: 83 Year
  Sex: Female
  Weight: 109.8 kg

DRUGS (1)
  1. FORTEO [Suspect]
     Active Substance: TERIPARATIDE
     Indication: OSTEOPOROSIS
     Dosage: ?          OTHER DOSE:MG;?
     Route: 058

REACTIONS (6)
  - Injection site pruritus [None]
  - Injection site pain [None]
  - Injection site swelling [None]
  - Injection site erythema [None]
  - Injection site rash [None]
  - Injection site bruising [None]
